FAERS Safety Report 5420615-1 (Version None)
Quarter: 2007Q3

REPORT INFORMATION
  Report Type: 
  Country: None (occurrence: None)
  Receive Date: 20070816
  Receipt Date: 20070809
  Transmission Date: 20080115
  Serious: Yes (Life-Threatening, Hospitalization, Other)
  Sender: FDA-Public Use
  Company Number: 07082214

PATIENT
  Age: 42 Year
  Sex: Male

DRUGS (1)
  1. BACITRACIN NOS [Suspect]
     Dosage: 1APP, ONCE, TOPICAL
     Route: 061

REACTIONS (2)
  - ANAPHYLACTIC REACTION [None]
  - HEART RATE DECREASED [None]
